FAERS Safety Report 6810027-8 (Version None)
Quarter: 2010Q2

REPORT INFORMATION
  Report Type: 
  Country: None (occurrence: None)
  Receive Date: 20100630
  Receipt Date: 20100615
  Transmission Date: 20101027
  Serious: Yes (Hospitalization)
  Sender: FDA-Public Use
  Company Number: B0662484A

PATIENT
  Age: 66 Year
  Sex: Male

DRUGS (3)
  1. PAROXETINE [Suspect]
     Indication: MAJOR DEPRESSION
     Dosage: 40MG PER DAY
     Route: 048
     Dates: start: 20070724, end: 20070812
  2. CLOMIPRAMINE [Suspect]
     Dosage: 150MG PER DAY
     Route: 065
     Dates: start: 20070724, end: 20070812
  3. SULPIRIDE [Concomitant]
     Dosage: 150MG PER DAY
     Route: 065

REACTIONS (31)
  - AGITATION [None]
  - ALTERED STATE OF CONSCIOUSNESS [None]
  - ANAEMIA [None]
  - ANXIETY [None]
  - BLOOD PRESSURE INCREASED [None]
  - C-REACTIVE PROTEIN INCREASED [None]
  - CATATONIA [None]
  - CONFUSIONAL STATE [None]
  - DELUSION [None]
  - DEPRESSION [None]
  - DISORIENTATION [None]
  - DRUG INTERACTION [None]
  - EMOTIONAL DISORDER [None]
  - HALLUCINATION, AUDITORY [None]
  - HALLUCINATION, VISUAL [None]
  - HOT FLUSH [None]
  - HYPERHIDROSIS [None]
  - HYPERREFLEXIA [None]
  - HYPERTENSION [None]
  - HYPOMANIA [None]
  - MUSCLE RIGIDITY [None]
  - MYOCLONUS [None]
  - OXYGEN SATURATION DECREASED [None]
  - PYREXIA [None]
  - SEROTONIN SYNDROME [None]
  - SINUS TACHYCARDIA [None]
  - STUPOR [None]
  - SUICIDE ATTEMPT [None]
  - TACHYCARDIA [None]
  - TONGUE BITING [None]
  - TREMOR [None]
